FAERS Safety Report 5883310-0 (Version None)
Quarter: 2008Q3

REPORT INFORMATION
  Report Type: 
  Country: None (occurrence: None)
  Receive Date: 20080910
  Receipt Date: 20080829
  Transmission Date: 20090109
  Serious: Yes (Life-Threatening, Hospitalization, Other)
  Sender: FDA-Public Use
  Company Number: 2008--02636

PATIENT
  Age: 60 Year
  Sex: Female
  Weight: 55 kg

DRUGS (9)
  1. VELCADE [Suspect]
     Indication: MULTIPLE MYELOMA
     Dosage: 2.06 MG, UNK, INTRAVENOUS
     Route: 042
     Dates: start: 20080509, end: 20080519
  2. VELCADE [Suspect]
  3. VELCADE [Suspect]
  4. DEXAMETHASONE [Concomitant]
  5. FLUCONAZOLE [Concomitant]
  6. ALLOPURINOL [Concomitant]
  7. LANSOPRAZOLE [Concomitant]
  8. VALACYCLOVIR [Concomitant]
  9. TINZAPARIN SODIUM (HEPARIN-FRACTION, SODIUM SALT) [Concomitant]

REACTIONS (3)
  - LUNG CONSOLIDATION [None]
  - LUNG INFILTRATION [None]
  - PULMONARY HYPERTENSION [None]
